FAERS Safety Report 9536850 (Version 1)
Quarter: 2013Q3

REPORT INFORMATION
  Report Type: Spontaneous
  Country: US (occurrence: None)
  Receive Date: 20130918
  Receipt Date: 20130918
  Transmission Date: 20140515
  Serious: Yes (Hospitalization)
  Sender: FDA-Public Use
  Company Number: None

PATIENT
  Age: 69 Year
  Sex: Female
  Weight: 107.4 kg

DRUGS (3)
  1. IFOSFAMIDE [Suspect]
  2. PACLITAXEL [Suspect]
  3. PEGFILGRASTIM [Suspect]

REACTIONS (2)
  - Chest discomfort [None]
  - Neutropenia [None]
